FAERS Safety Report 12570057 (Version 1)
Quarter: 2016Q3

REPORT INFORMATION
  Report Type: Spontaneous
  Country: US (occurrence: US)
  Receive Date: 20160719
  Receipt Date: 20160719
  Transmission Date: 20161109
  Serious: No
  Sender: FDA-Public Use
  Company Number: US-TEVA-665932USA

PATIENT
  Sex: Female

DRUGS (3)
  1. ZECUITY [Suspect]
     Active Substance: SUMATRIPTAN SUCCINATE
     Dosage: USED 2 PATCHES
     Route: 062
     Dates: start: 20160604, end: 20160604
  2. IMITREX [Concomitant]
     Active Substance: SUMATRIPTAN SUCCINATE
  3. ZECUITY [Suspect]
     Active Substance: SUMATRIPTAN SUCCINATE
     Indication: MIGRAINE
     Dosage: USED A FEW WEEKS AGO
     Route: 062
     Dates: start: 2016, end: 2016

REACTIONS (5)
  - Application site irritation [Recovering/Resolving]
  - Product physical issue [Unknown]
  - Drug ineffective [Unknown]
  - Application site erythema [Recovering/Resolving]
  - Application site exfoliation [Recovering/Resolving]

NARRATIVE: CASE EVENT DATE: 2016
